FAERS Safety Report 7395959 (Version 2)
Quarter: 2020Q1

REPORT INFORMATION
  Report Type: Report from Study
  Country: US (occurrence: DE)
  Receive Date: 20100521
  Receipt Date: 20200324
  Transmission Date: 20200409
  Serious: Yes (Hospitalization, Other)
  Sender: FDA-Public Use
  Company Number: US-ROCHE-343896

PATIENT
  Sex: Female

DRUGS (5)
  1. TRASTUZUMAB. [Suspect]
     Active Substance: TRASTUZUMAB
     Indication: BREAST CANCER METASTATIC
     Route: 064
     Dates: start: 20020709
  2. TRASTUZUMAB. [Suspect]
     Active Substance: TRASTUZUMAB
     Route: 064
     Dates: start: 20030214
  3. TRASTUZUMAB. [Suspect]
     Active Substance: TRASTUZUMAB
     Dosage: LOADING DOSE
     Route: 064
  4. TRASTUZUMAB. [Suspect]
     Active Substance: TRASTUZUMAB
     Dosage: START DATE REPORTED AS 6 WEEKS PRIOR TO PREGNANCY.
     Route: 064
  5. NAVELBINE [Suspect]
     Active Substance: VINORELBINE TARTRATE
     Indication: BREAST CANCER METASTATIC
     Route: 064
     Dates: start: 20020709, end: 20030123

REACTIONS (15)
  - Multiple organ dysfunction syndrome [Unknown]
  - Right ventricular failure [Unknown]
  - Renal failure [Unknown]
  - Premature delivery [Unknown]
  - Cerebral haemorrhage [Unknown]
  - Premature baby [Unknown]
  - Premature baby [Unknown]
  - Neonatal respiratory distress syndrome [Unknown]
  - Pneumothorax [Unknown]
  - Capillary leak syndrome [Unknown]
  - Respiratory failure [Unknown]
  - Infection [Unknown]
  - Caesarean section [Unknown]
  - Oligohydramnios [Unknown]
  - Necrotising colitis [Unknown]

NARRATIVE: CASE EVENT DATE: 20030902
